FAERS Safety Report 4744669-0 (Version None)
Quarter: 2005Q3

REPORT INFORMATION
  Report Type: 
  Country: None (occurrence: None)
  Receive Date: 20050815
  Receipt Date: 20050804
  Transmission Date: 20060218
  Serious: Yes (Hospitalization)
  Sender: FDA-Public Use
  Company Number: US-JNJFOC-20050801889

PATIENT
  Sex: Male
  Weight: 72.58 kg

DRUGS (13)
  1. INFLIXIMAB [Suspect]
     Indication: RHEUMATOID ARTHRITIS
     Route: 042
     Dates: start: 20010220, end: 20040910
  2. SYNTHROID [Concomitant]
  3. NIASPAN [Concomitant]
  4. ACCUPRIL [Concomitant]
  5. NORVASC [Concomitant]
  6. FOLIC ACID [Concomitant]
  7. ALLOPURINOL [Concomitant]
  8. PROBENECID [Concomitant]
  9. ASPIRIN [Concomitant]
  10. ALPRAZOLAM [Concomitant]
     Dosage: BEDTIME
  11. ARAVA [Concomitant]
  12. LIPITOR [Concomitant]
  13. PLAVIX [Concomitant]

REACTIONS (1)
  - LUNG NEOPLASM [None]
